FAERS Safety Report 9314273 (Version 2)
Quarter: 2013Q3

REPORT INFORMATION
  Report Type: Report from Study
  Country: US (occurrence: US)
  Receive Date: 20130529
  Receipt Date: 20130801
  Transmission Date: 20140515
  Serious: Yes (Hospitalization, Other)
  Sender: FDA-Public Use
  Company Number: PHEH2013US011528

PATIENT
  Age: 25 Year
  Sex: Male

DRUGS (1)
  1. GILENYA [Suspect]
     Indication: MULTIPLE SCLEROSIS
     Dosage: 0.5 MG, QD
     Route: 048
     Dates: start: 20130329

REACTIONS (8)
  - Blood glucose increased [Recovering/Resolving]
  - Diabetic ketoacidosis [Recovered/Resolved]
  - Hyperreflexia [Unknown]
  - Extensor plantar response [Unknown]
  - Obesity [Unknown]
  - Blood pressure diastolic decreased [Unknown]
  - Neutrophil count increased [Unknown]
  - Lymphocyte count decreased [Unknown]
